FAERS Safety Report 9252995 (Version 3)
Quarter: 2013Q2

REPORT INFORMATION
  Report Type: Spontaneous
  Country: US (occurrence: US)
  Receive Date: 20130424
  Receipt Date: 20130520
  Transmission Date: 20140414
  Serious: Yes (Other)
  Sender: FDA-Public Use
  Company Number: US-PURDUE-USA-2013-0101147

PATIENT
  Sex: Female

DRUGS (2)
  1. OXYCONTIN TABLETS [Suspect]
     Indication: PAIN
  2. OXYCODONE HYDROCHLORIDE (SIMILAR TO NDA 20-553) [Suspect]
     Indication: PAIN

REACTIONS (12)
  - Drug dependence [Unknown]
  - Intervertebral disc disorder [Unknown]
  - Autoimmune disorder [Unknown]
  - Fibromyalgia [Unknown]
  - Nerve root compression [Unknown]
  - Intentional drug misuse [Unknown]
  - Sciatica [Unknown]
  - Pain [Unknown]
  - Drug withdrawal syndrome [Unknown]
  - Weight decreased [Unknown]
  - Malaise [Unknown]
  - Stress [Unknown]
